FAERS Safety Report 5947881-8 (Version None)
Quarter: 2008Q4

REPORT INFORMATION
  Report Type: 
  Country: None (occurrence: None)
  Receive Date: 20081111
  Receipt Date: 20081106
  Transmission Date: 20090506
  Serious: Yes (Life-Threatening)
  Sender: FDA-Public Use
  Company Number: US-WYE-H06729608

PATIENT
  Sex: Female
  Weight: 57.6 kg

DRUGS (3)
  1. TEMSIROLIMUS [Suspect]
     Indication: RECTAL CANCER METASTATIC
     Route: 042
     Dates: start: 20080909, end: 20080909
  2. TEMSIROLIMUS [Suspect]
     Route: 042
     Dates: start: 20080923
  3. DOCETAXEL [Suspect]
     Indication: RECTAL CANCER METASTATIC
     Route: 042
     Dates: start: 20080909, end: 20080909

REACTIONS (1)
  - NEUTROPENIA [None]
